FAERS Safety Report 8618614-1 (Version None)
Quarter: 2012Q3

REPORT INFORMATION
  Report Type: 
  Country: None (occurrence: None)
  Receive Date: 20120814
  Receipt Date: 20120814
  Transmission Date: 20120928
  Serious: No
  Sender: FDA-Public Use
  Company Number: None

PATIENT
  Age: 76 Year
  Sex: Female
  Weight: 72.5755 kg

DRUGS (1)
  1. CLARITHROMYCIN [Suspect]
     Indication: BACTERIAL INFECTION
     Dosage: 500 MG TWO TIMES DAILY PO
     Route: 048
     Dates: start: 20120803, end: 20120810

REACTIONS (9)
  - ANXIETY [None]
  - PYREXIA [None]
  - HEADACHE [None]
  - DIZZINESS [None]
  - CHILLS [None]
  - NAUSEA [None]
  - ABDOMINAL PAIN UPPER [None]
  - DIARRHOEA [None]
  - SLEEP DISORDER [None]
